FAERS Safety Report 8219863-7 (Version None)
Quarter: 2012Q1

REPORT INFORMATION
  Report Type: 
  Country: None (occurrence: None)
  Receive Date: 20120319
  Receipt Date: 20120308
  Transmission Date: 20120608
  Serious: Yes (Other)
  Sender: FDA-Public Use
  Company Number: US-ASTRAZENECA-2012SE16077

PATIENT
  Age: 61 Year
  Sex: Male
  Weight: 77.1 kg

DRUGS (5)
  1. SEROQUEL XR [Suspect]
     Indication: BIPOLAR DISORDER
     Route: 048
  2. LITHIUM CARBONATE [Concomitant]
  3. CRESTOR [Suspect]
     Route: 048
  4. CRESTOR [Suspect]
     Route: 048
  5. NELOXICAM [Concomitant]
     Indication: OEDEMA PERIPHERAL

REACTIONS (3)
  - MUSCULOSKELETAL PAIN [None]
  - MYALGIA [None]
  - PERIPHERAL VASCULAR DISORDER [None]
